FAERS Safety Report 7895711-X (Version None)
Quarter: 2011Q4

REPORT INFORMATION
  Report Type: 
  Country: None (occurrence: None)
  Receive Date: 20111106
  Receipt Date: 20110830
  Transmission Date: 20120403
  Serious: No
  Sender: FDA-Public Use
  Company Number: US-AMGEN-USASP2011044580

PATIENT
  Age: 67 Year
  Sex: Female

DRUGS (4)
  1. ISONIAZID [Concomitant]
     Dosage: 100 MG, UNK
     Route: 048
  2. PRILOSEC [Concomitant]
     Dosage: 10 MG, UNK
     Route: 048
  3. ACTONEL [Concomitant]
     Dosage: 30 MG, UNK
     Route: 048
  4. ENBREL [Suspect]
     Indication: PRODUCT USED FOR UNKNOWN INDICATION
     Dosage: 50 MG, QWK
     Route: 058

REACTIONS (3)
  - OEDEMA PERIPHERAL [None]
  - CONTUSION [None]
  - RASH [None]
